FAERS Safety Report 7348873-7 (Version None)
Quarter: 2011Q1

REPORT INFORMATION
  Report Type: 
  Country: None (occurrence: None)
  Receive Date: 20110314
  Receipt Date: 20110302
  Transmission Date: 20110831
  Serious: Yes (Hospitalization)
  Sender: FDA-Public Use
  Company Number: ES-ELI_LILLY_AND_COMPANY-ES201103000856

PATIENT
  Sex: Male
  Weight: 65 kg

DRUGS (7)
  1. SIMVASTATINA [Concomitant]
     Indication: DYSLIPIDAEMIA
     Dosage: 40 MG, DAILY (1/D)
     Route: 048
  2. OMEPRAZOLE [Concomitant]
     Dosage: 1 TABLET DAILY
     Route: 048
  3. ESIDRIX [Concomitant]
     Dosage: 1 TABLET DAILY
     Route: 048
     Dates: start: 20110216
  4. NEUROBION                          /00176001/ [Concomitant]
     Dosage: 2 TABLETS DAILY
     Route: 048
  5. ENALAPRIL MALEATE [Concomitant]
     Indication: HYPERTENSION
     Dosage: 20 MG, DAILY (1/D)
     Route: 048
  6. CREON [Concomitant]
     Dosage: 4 TABLETS ORALLY
     Route: 048
  7. FORTEO [Suspect]
     Indication: OSTEOPOROSIS
     Dosage: 20 UG, DAILY (1/D)
     Route: 058
     Dates: start: 20100508

REACTIONS (1)
  - PERFORATED ULCER [None]
